FAERS Safety Report 6493300-5 (Version None)
Quarter: 2009Q4

REPORT INFORMATION
  Report Type: 
  Country: None (occurrence: None)
  Receive Date: 20091211
  Receipt Date: 20091211
  Transmission Date: 20100525
  Serious: No
  Sender: FDA-Public Use
  Company Number: None

PATIENT
  Age: 74 Year
  Sex: Male
  Weight: 81.6475 kg

DRUGS (1)
  1. NEXIUM [Suspect]
     Dosage: 40MG DAILY

REACTIONS (4)
  - ABDOMINAL PAIN UPPER [None]
  - DEPENDENCE [None]
  - ERUCTATION [None]
  - FLATULENCE [None]
